FAERS Safety Report 10086360 (Version 1)
Quarter: 2014Q2

REPORT INFORMATION
  Report Type: Spontaneous
  Country: US (occurrence: None)
  Receive Date: 20140417
  Receipt Date: 20140417
  Transmission Date: 20141212
  Serious: No
  Sender: FDA-Public Use
  Company Number: None

PATIENT
  Age: 42 Year
  Sex: Female
  Weight: 56.25 kg

DRUGS (1)
  1. NASACORT 55 MCG 3H187NA [Suspect]
     Route: 045
     Dates: start: 20140301, end: 20140411

REACTIONS (3)
  - Anxiety [None]
  - Insomnia [None]
  - Fatigue [None]
